FAERS Safety Report 4723971-2 (Version None)
Quarter: 2005Q3

REPORT INFORMATION
  Report Type: 
  Country: None (occurrence: None)
  Receive Date: 20050725
  Receipt Date: 20050715
  Transmission Date: 20060218
  Serious: Yes (Life-Threatening)
  Sender: FDA-Public Use
  Company Number: DE-ABBOTT-05P-062-0306101-00

PATIENT
  Sex: Female
  Weight: 60 kg

DRUGS (32)
  1. KALETRA [Suspect]
     Indication: HIV INFECTION
     Route: 048
     Dates: start: 20040303, end: 20040401
  2. KALETRA [Suspect]
     Dates: start: 20040401
  3. MAVID [Suspect]
     Indication: DRUG USE FOR UNKNOWN INDICATION
     Route: 048
     Dates: start: 20040327, end: 20040327
  4. KLACID I.V. [Suspect]
     Indication: DRUG USE FOR UNKNOWN INDICATION
     Route: 042
     Dates: start: 20040331, end: 20040401
  5. LAMIVUDINE + ZIDOVUDINE [Suspect]
     Indication: HIV INFECTION
     Route: 048
     Dates: start: 20040303, end: 20040401
  6. COTRIM DS [Suspect]
     Indication: PROPHYLAXIS
     Route: 048
     Dates: start: 20040303, end: 20040401
  7. ESOMEPRAZOLE [Concomitant]
     Indication: DRUG USE FOR UNKNOWN INDICATION
     Dates: start: 20040303, end: 20040316
  8. FLUCONAZOLE [Concomitant]
     Indication: DRUG USE FOR UNKNOWN INDICATION
     Dates: start: 20031201, end: 20040323
  9. ACETAMINOPHEN [Concomitant]
     Indication: DRUG USE FOR UNKNOWN INDICATION
     Dates: start: 20031201, end: 20040323
  10. ALBUTEROL SULFATE HFA [Concomitant]
     Indication: DRUG USE FOR UNKNOWN INDICATION
     Dates: start: 20010101, end: 20040407
  11. FLUCONAZOLE [Concomitant]
     Dates: start: 20040325
  12. AMITRIPTYLINE HCL [Concomitant]
     Indication: DRUG USE FOR UNKNOWN INDICATION
     Dates: start: 20040324
  13. AMITRIPTYLINE HCL [Concomitant]
     Dates: start: 20040327
  14. PANTOPRAZOLE SODIUM [Concomitant]
     Indication: DRUG USE FOR UNKNOWN INDICATION
     Dates: start: 20040324
  15. DIAZEPAM [Concomitant]
     Route: 042
     Dates: start: 20040326, end: 20040326
  16. TRAMADOL HCL [Concomitant]
     Indication: DRUG USE FOR UNKNOWN INDICATION
     Dates: start: 20040324, end: 20040324
  17. VALORON [Concomitant]
     Indication: DRUG USE FOR UNKNOWN INDICATION
     Dates: start: 20040324, end: 20040327
  18. VALORON [Concomitant]
     Dates: start: 20040325, end: 20040325
  19. VALORON [Concomitant]
     Dates: start: 20040326, end: 20040327
  20. MCP [Concomitant]
     Indication: DRUG USE FOR UNKNOWN INDICATION
     Dates: start: 20040327, end: 20040327
  21. LORMETAZEPAM [Concomitant]
     Indication: DRUG USE FOR UNKNOWN INDICATION
     Dates: start: 20040326, end: 20040326
  22. LORMETAZEPAM [Concomitant]
     Dates: start: 20040328, end: 20040328
  23. IBUPROFEN LYSINATE [Concomitant]
     Indication: DRUG USE FOR UNKNOWN INDICATION
     Dates: start: 20040324, end: 20040325
  24. METAMIZOLE SODIUM [Concomitant]
     Indication: DRUG USE FOR UNKNOWN INDICATION
     Dates: start: 20040328, end: 20040401
  25. ISOPROMETHAZINE HYDROCHLORIDE [Concomitant]
     Indication: DRUG USE FOR UNKNOWN INDICATION
     Dates: start: 20040329, end: 20040329
  26. DOLONTIN [Concomitant]
     Indication: DRUG USE FOR UNKNOWN INDICATION
     Dates: start: 20040329, end: 20040329
  27. LORAZEPAM [Concomitant]
     Indication: DRUG USE FOR UNKNOWN INDICATION
     Dates: start: 20040328, end: 20040330
  28. DIAZEPAM [Concomitant]
     Indication: DRUG USE FOR UNKNOWN INDICATION
     Dates: start: 20040329, end: 20040329
  29. HYOSCINE HBR HYT [Concomitant]
     Indication: DRUG USE FOR UNKNOWN INDICATION
     Dates: start: 20040331, end: 20040331
  30. MERONEM 1 GRAM IN NACL 0.9% [Concomitant]
     Indication: DRUG USE FOR UNKNOWN INDICATION
     Dates: start: 20040401, end: 20040401
  31. STEROFUNDIN [Concomitant]
     Indication: DRUG USE FOR UNKNOWN INDICATION
     Dates: start: 20040328, end: 20040401
  32. POTASSIUM CHLORIDE [Concomitant]
     Indication: DRUG USE FOR UNKNOWN INDICATION
     Dates: start: 20050401, end: 20050401

REACTIONS (1)
  - APLASTIC ANAEMIA [None]
